FAERS Safety Report 15969034 (Version 1)
Quarter: 2019Q1

REPORT INFORMATION
  Report Type: Spontaneous
  Country: US (occurrence: US)
  Receive Date: 20190215
  Receipt Date: 20190215
  Transmission Date: 20190418
  Serious: No
  Sender: FDA-Public Use
  Company Number: US-ASTRAZENECA-2019SE08718

PATIENT
  Sex: Female

DRUGS (3)
  1. FASLODEX [Suspect]
     Active Substance: FULVESTRANT
     Indication: METASTASES TO BREAST
     Route: 030
     Dates: start: 20180927, end: 20181210
  2. FULVESTRANT. [Suspect]
     Active Substance: FULVESTRANT
     Indication: METASTASES TO BREAST
     Route: 030
     Dates: start: 20180927, end: 20181210
  3. IBRANCE [Suspect]
     Active Substance: PALBOCICLIB
     Indication: BREAST CANCER METASTATIC
     Dosage: 100 MG 21/28 DAYS, DECREASED TO 75 MG
     Route: 048
     Dates: start: 20180927, end: 20181006

REACTIONS (4)
  - Asthenia [Recovered/Resolved]
  - Decreased appetite [Recovered/Resolved]
  - Full blood count decreased [Unknown]
  - Nausea [Recovered/Resolved]
